FAERS Safety Report 6436125-9 (Version None)
Quarter: 2009Q4

REPORT INFORMATION
  Report Type: 
  Country: None (occurrence: None)
  Receive Date: 20091111
  Receipt Date: 20091027
  Transmission Date: 20100525
  Serious: Yes (Hospitalization, Other)
  Sender: FDA-Public Use
  Company Number: NL-GENENTECH-293146

PATIENT
  Sex: Female

DRUGS (8)
  1. RANIBIZUMAB [Suspect]
     Indication: RETINAL NEOVASCULARISATION
     Dosage: 0.05 ML, UNK
     Route: 031
     Dates: start: 20090303
  2. ISOSORBIDE [Suspect]
     Indication: DRUG USE FOR UNKNOWN INDICATION
  3. LABETALOL HCL [Concomitant]
     Indication: DRUG USE FOR UNKNOWN INDICATION
  4. SIMVASTATIN [Concomitant]
     Indication: DRUG USE FOR UNKNOWN INDICATION
  5. BETAXOLOL [Concomitant]
     Indication: DRUG USE FOR UNKNOWN INDICATION
  6. ACETYLSALICYLIC ACID [Concomitant]
     Indication: DRUG USE FOR UNKNOWN INDICATION
  7. METAMUCIL [Concomitant]
     Indication: DRUG USE FOR UNKNOWN INDICATION
  8. FOSINOPRIL SODIUM [Concomitant]
     Indication: DRUG USE FOR UNKNOWN INDICATION

REACTIONS (1)
  - CARDIAC DISORDER [None]
